FAERS Safety Report 8979002 (Version 3)
Quarter: 2013Q1

REPORT INFORMATION
  Report Type: Spontaneous
  Country: JP (occurrence: JP)
  Receive Date: 20121221
  Receipt Date: 20130116
  Transmission Date: 20140127
  Serious: Yes (Hospitalization)
  Sender: FDA-Public Use
  Company Number: JP-B.I. PHARMACEUTICALS,INC./RIDGEFIELD-2012-BI-03465GD

PATIENT
  Age: 79 Year
  Sex: Female

DRUGS (4)
  1. TIOTROPIUM [Suspect]
     Indication: ASTHMA
  2. AMBROXOL [Suspect]
     Indication: ASTHMA
  3. THEOPHYLLINE [Suspect]
     Indication: ASTHMA
     Route: 048
  4. BUDESONIDE [Suspect]
     Indication: ASTHMA

REACTIONS (4)
  - Allergic granulomatous angiitis [Recovered/Resolved]
  - Mouth ulceration [Unknown]
  - Dermatitis [Unknown]
  - Gait disturbance [Unknown]
